FAERS Safety Report 17397035 (Version 2)
Quarter: 2020Q1

REPORT INFORMATION
  Report Type: Report from Study
  Country: US (occurrence: US)
  Receive Date: 20200210
  Receipt Date: 20200327
  Transmission Date: 20200409
  Serious: Yes (Hospitalization)
  Sender: FDA-Public Use
  Company Number: US-EISAI MEDICAL RESEARCH-EC-2018-044876

PATIENT
  Age: 79 Year
  Sex: Female

DRUGS (6)
  1. LENVIMA [Suspect]
     Active Substance: LENVATINIB
     Indication: THYROID CANCER
     Route: 048
     Dates: start: 20180825, end: 20180912
  2. LENVIMA [Suspect]
     Active Substance: LENVATINIB
     Route: 048
     Dates: start: 20180914, end: 201810
  3. LENVIMA [Suspect]
     Active Substance: LENVATINIB
     Route: 048
     Dates: start: 201810, end: 201810
  4. LENVIMA [Suspect]
     Active Substance: LENVATINIB
     Dosage: DAILY, ONE WEEK ON ONE WEEK OFF
     Route: 048
     Dates: start: 2019, end: 201910
  5. LENVIMA [Suspect]
     Active Substance: LENVATINIB
     Dosage: DAILY, ONE WEEK ON ONE WEEK OFF
     Route: 048
     Dates: start: 20191007
  6. LENVIMA [Suspect]
     Active Substance: LENVATINIB
     Route: 048
     Dates: start: 201810, end: 201810

REACTIONS (22)
  - Thyroglobulin increased [Unknown]
  - Pulmonary embolism [Unknown]
  - Malaise [Not Recovered/Not Resolved]
  - Dysphonia [Unknown]
  - Tooth abscess [Unknown]
  - Blood pressure increased [Unknown]
  - Lip disorder [Unknown]
  - Weight decreased [Recovering/Resolving]
  - Blood pressure fluctuation [Not Recovered/Not Resolved]
  - Oropharyngeal pain [Not Recovered/Not Resolved]
  - Urinary tract infection [Recovered/Resolved]
  - Dyspnoea [Unknown]
  - Depression [Not Recovered/Not Resolved]
  - Fatigue [Unknown]
  - Malignant neoplasm progression [Not Recovered/Not Resolved]
  - Oral disorder [Recovered/Resolved]
  - Glossodynia [Recovered/Resolved]
  - Headache [Recovering/Resolving]
  - Lethargy [Not Recovered/Not Resolved]
  - Gingival bleeding [Unknown]
  - Decreased appetite [Recovering/Resolving]
  - Lower limb fracture [Not Recovered/Not Resolved]

NARRATIVE: CASE EVENT DATE: 2018
